FAERS Safety Report 9200183 (Version 2)
Quarter: 2013Q2

REPORT INFORMATION
  Report Type: Report from Study
  Country: BE (occurrence: BE)
  Receive Date: 20130329
  Receipt Date: 20130404
  Transmission Date: 20140414
  Serious: Yes (Death)
  Sender: FDA-Public Use
  Company Number: BE-ROCHE-1208171

PATIENT
  Age: 83 Year
  Sex: Male
  Weight: 74 kg

DRUGS (7)
  1. OXALIPLATIN [Suspect]
     Indication: COLORECTAL CANCER METASTATIC
     Route: 042
     Dates: start: 20120710, end: 20120807
  2. FLUOROURACIL [Suspect]
     Indication: COLORECTAL CANCER METASTATIC
     Route: 042
     Dates: start: 20120530, end: 20120807
  3. FLUOROURACIL [Suspect]
     Route: 042
     Dates: start: 20120530, end: 20120809
  4. BURINEX [Concomitant]
     Route: 048
     Dates: end: 20120918
  5. EMCONCOR [Concomitant]
     Indication: HYPERTENSION
     Route: 048
     Dates: start: 20070403, end: 20120918
  6. ZOCOR [Concomitant]
     Indication: HYPERCHOLESTEROLAEMIA
     Route: 048
     Dates: start: 20070402, end: 20120918
  7. ASAFLOW [Concomitant]
     Route: 048
     Dates: start: 20070402, end: 20120918

REACTIONS (1)
  - General physical health deterioration [Fatal]
